FAERS Safety Report 5618838-1 (Version None)
Quarter: 2008Q1

REPORT INFORMATION
  Report Type: 
  Country: None (occurrence: None)
  Receive Date: 20080207
  Receipt Date: 20080128
  Transmission Date: 20080703
  Serious: Yes (Death, Hospitalization, Other)
  Sender: FDA-Public Use
  Company Number: US-ELI_LILLY_AND_COMPANY-US200710000585

PATIENT
  Sex: Female
  Weight: 61.678 kg

DRUGS (19)
  1. GEMZAR [Suspect]
     Indication: NON-SMALL CELL LUNG CANCER METASTATIC
     Dates: start: 20070424, end: 20070516
  2. ALIMTA [Suspect]
     Indication: NON-SMALL CELL LUNG CANCER METASTATIC
     Dosage: UNK, UNK
     Dates: start: 20070815, end: 20070101
  3. NAVELBINE [Concomitant]
     Indication: NON-SMALL CELL LUNG CANCER METASTATIC
     Dates: start: 20070424, end: 20070101
  4. PROCRIT [Concomitant]
     Indication: ANAEMIA OF MALIGNANT DISEASE
     Dosage: 80000 IU, ONCE IN THREE WEEKS
     Route: 058
     Dates: start: 20070606, end: 20070627
  5. PREVACID [Concomitant]
     Dosage: 30 MG, 2/D
     Route: 048
     Dates: start: 20070522, end: 20070101
  6. IRON SULFATETHIAMIN COMPOUND TAB [Concomitant]
     Dosage: UNK, DAILY (1/D)
     Route: 048
     Dates: start: 20070606, end: 20070101
  7. FLEXERIL [Concomitant]
     Indication: PAIN IN EXTREMITY
     Dosage: 5 MG, DAILY, AS NECESSARY
     Route: 048
     Dates: start: 20070727, end: 20070101
  8. FOLIC ACID [Concomitant]
     Dosage: 1 MG, DAILY (1/D)
     Route: 048
     Dates: start: 20070809, end: 20070101
  9. DECADRON                                /CAN/ [Concomitant]
     Dosage: 4 MG, DAILY (1/D)
     Route: 048
     Dates: start: 20070809, end: 20070101
  10. OXYCONTIN [Concomitant]
     Indication: MUSCULOSKELETAL PAIN
     Dosage: 40 MG, 2/D
     Route: 048
     Dates: start: 20070405, end: 20070101
  11. OXYCONTIN [Concomitant]
     Dosage: 40 MG, 3/D
     Route: 048
     Dates: start: 20070719, end: 20070101
  12. ESTROPIPATE [Concomitant]
     Route: 048
     Dates: start: 19970101, end: 20070101
  13. ALEVE [Concomitant]
     Dosage: 1 TO 4 TABLETS EVERY 24 HOURS PRN
     Route: 048
     Dates: start: 20070124, end: 20070101
  14. POTASSIUM CHLORIDE [Concomitant]
     Dosage: 20 MEQ, DAILY (1/D)
     Route: 042
     Dates: start: 20070830, end: 20070101
  15. RAMELTEON [Concomitant]
     Indication: INSOMNIA
     Dosage: 8 MG, OTHER
     Route: 048
     Dates: start: 20070719
  16. PERCOCET [Concomitant]
     Indication: PAIN
     Dosage: UNK, DAILY (1/D), AS NEEDED
     Route: 048
     Dates: start: 20070405, end: 20070101
  17. VITAMIN B-12 [Concomitant]
     Route: 058
     Dates: start: 20070809, end: 20070101
  18. NORVASC [Concomitant]
     Dosage: 5 MG, DAILY (1/D)
     Route: 048
     Dates: start: 20070118, end: 20070101
  19. AMBIEN [Concomitant]
     Indication: INSOMNIA
     Dosage: UNK, DAILY (1/D)
     Route: 048
     Dates: start: 20070830, end: 20070101

REACTIONS (4)
  - ANAEMIA [None]
  - MALIGNANT NEOPLASM PROGRESSION [None]
  - ORAL INTAKE REDUCED [None]
  - WEIGHT DECREASED [None]
